FAERS Safety Report 5551423-9 (Version None)
Quarter: 2007Q4

REPORT INFORMATION
  Report Type: 
  Country: None (occurrence: None)
  Receive Date: 20071128
  Receipt Date: 20070429
  Transmission Date: 20080405
  Serious: Yes (Other)
  Sender: FDA-Public Use
  Company Number: 2007035247

PATIENT
  Age: 50 Year
  Sex: Male
  Weight: 81.36 kg

DRUGS (6)
  1. LIPITOR [Suspect]
     Indication: BLOOD CHOLESTEROL
     Dosage: 10 MG (10 MG, 1 IN 1 D) ABOUT 2 YEARS AGO
  2. CELEBREX [Suspect]
     Indication: PAIN IN EXTREMITY
     Dosage: 200 MG
     Dates: start: 20070201
  3. AMOXICILLIN TRIHYDRATE/CLAVULANATE POTASSIUM (AMOXICILLIN TRIHYDRATE, [Suspect]
     Indication: SINUSITIS
     Dates: start: 20070209
  4. ALLEGRA (FEXOFANADINE HYDROCHLORIDE) [Concomitant]
  5. NEXIUM [Concomitant]
  6. MULTI-VITAMINS [Concomitant]

REACTIONS (4)
  - ACCIDENT AT WORK [None]
  - DRUG INEFFECTIVE [None]
  - PAIN IN EXTREMITY [None]
  - SINUSITIS [None]
